FAERS Safety Report 6719811-2 (Version None)
Quarter: 2010Q2

REPORT INFORMATION
  Report Type: 
  Country: None (occurrence: None)
  Receive Date: 20100511
  Receipt Date: 20100428
  Transmission Date: 20101027
  Serious: Yes (Other)
  Sender: FDA-Public Use
  Company Number: PHHY2009JP35432

PATIENT
  Sex: Male

DRUGS (10)
  1. DIOVAN [Suspect]
     Dosage: 40 MG DAILY
     Route: 048
     Dates: start: 20080701, end: 20080715
  2. DIOVAN [Suspect]
     Dosage: 80 MG DAILY
     Route: 048
     Dates: start: 20080716, end: 20081119
  3. CONIEL [Concomitant]
     Indication: HYPERTENSION
     Dosage: 8 MG, UNK
     Route: 048
     Dates: start: 20080603
  4. CONIEL [Concomitant]
     Dosage: 16 MG, UNK
     Route: 048
  5. SALOBEL [Concomitant]
     Dosage: 100 MG, UNK
     Route: 048
     Dates: start: 20080607
  6. LASIX [Concomitant]
     Dosage: 20 MG, UNK
     Route: 048
     Dates: start: 20080607
  7. ASPIRIN [Concomitant]
     Dosage: 100 MG, UNK
     Route: 048
     Dates: start: 20080607
  8. TAKEPRON [Concomitant]
     Dosage: 15 MG, UNK
     Route: 048
     Dates: start: 20080607
  9. CRESTOR [Concomitant]
     Dosage: 2.5 MG, UNK
     Route: 048
     Dates: start: 20080607
  10. PROMAC [Concomitant]
     Dosage: 75 MG, UNK
     Dates: start: 20080607

REACTIONS (5)
  - BLOOD PRESSURE DECREASED [None]
  - DEHYDRATION [None]
  - DIARRHOEA [None]
  - ENTEROCOLITIS [None]
  - RENAL DISORDER [None]
